FAERS Safety Report 5517443-5 (Version None)
Quarter: 2007Q4

REPORT INFORMATION
  Report Type: 
  Country: None (occurrence: None)
  Receive Date: 20071114
  Receipt Date: 20071108
  Transmission Date: 20080405
  Serious: Yes (Other)
  Sender: FDA-Public Use
  Company Number: CA-ASTRAZENECA-2007UW26034

PATIENT
  Age: 86 Year
  Sex: Female

DRUGS (11)
  1. XYLOCAINE [Suspect]
     Route: 047
  2. ALPHAGAN [Suspect]
  3. D.O.R.C. VISION BLUE [Suspect]
  4. KETOROLAC [Suspect]
  5. MIOCHOL [Suspect]
  6. PHENYLEPHRINE HCL [Suspect]
  7. PREDNISOLONE [Suspect]
  8. PROVIODINE [Suspect]
  9. TETRACAINE [Suspect]
  10. TROPICAMIDE [Suspect]
  11. ZYMAR [Suspect]

REACTIONS (2)
  - EYE DISORDER [None]
  - INFLAMMATION [None]
